FAERS Safety Report 21593156 (Version 1)
Quarter: 2022Q4

REPORT INFORMATION
  Report Type: Spontaneous
  Country: NL (occurrence: NL)
  Receive Date: 20221114
  Receipt Date: 20221114
  Transmission Date: 20230113
  Serious: Yes (Other)
  Sender: FDA-Public Use
  Company Number: None

PATIENT
  Sex: Female
  Weight: 75 kg

DRUGS (8)
  1. PREDNISOLONE [Suspect]
     Active Substance: PREDNISOLONE
     Indication: Pemphigus
     Route: 065
     Dates: start: 20180101
  2. PFIZER-BIONTECH COVID-19 VACCINE [Suspect]
     Active Substance: TOZINAMERAN
     Indication: COVID-19 immunisation
     Dosage: COVID-19 VACCIN PFIZER ORIG/OMIC BA.1 INJVLST / COVID-19 VACCIN PFIZER ORIG/OMICRON BA.1 INJ 0,3ML
     Route: 065
     Dates: start: 20221019
  3. ETORICOXIB [Concomitant]
     Active Substance: ETORICOXIB
     Indication: Product used for unknown indication
     Dosage: 120 MG (MILLIGRAM)
     Dates: start: 2022
  4. LEVOTHYROXINE [Concomitant]
     Active Substance: LEVOTHYROXINE
     Indication: Product used for unknown indication
     Dosage: TABLET, 150 ?G (MICROGRAM)
  5. BETAHISTINE [Concomitant]
     Active Substance: BETAHISTINE
     Indication: Product used for unknown indication
     Dosage: 36 MG
  6. CARBAMAZEPINE [Concomitant]
     Active Substance: CARBAMAZEPINE
     Indication: Product used for unknown indication
     Dosage: SUSPENSIE, 20 MG/ML (MILLIGRAM PER MILLILITER)
  7. CLINDAMYCIN [Concomitant]
     Active Substance: CLINDAMYCIN
     Indication: Product used for unknown indication
     Dosage: CAPSULE, 300 MG (MILLIGRAM)
     Route: 065
  8. PIRACETAM [Concomitant]
     Active Substance: PIRACETAM
     Indication: Product used for unknown indication

REACTIONS (12)
  - Pemphigoid [Not Recovered/Not Resolved]
  - Extensive swelling of vaccinated limb [Not Recovered/Not Resolved]
  - Chills [Recovering/Resolving]
  - Pyrexia [Recovering/Resolving]
  - Arthralgia [Not Recovered/Not Resolved]
  - Myalgia [Not Recovered/Not Resolved]
  - Malaise [Not Recovered/Not Resolved]
  - Injection site pruritus [Not Recovered/Not Resolved]
  - Injection site pain [Not Recovered/Not Resolved]
  - Lymphadenopathy [Not Recovered/Not Resolved]
  - Injection site erythema [Not Recovered/Not Resolved]
  - Vaccination site lymphadenopathy [Not Recovered/Not Resolved]
